APPROVED DRUG PRODUCT: FENOFIBRATE
Active Ingredient: FENOFIBRATE
Strength: 160MG
Dosage Form/Route: TABLET;ORAL
Application: A210670 | Product #002 | TE Code: AB
Applicant: DR REDDYS LABORATORIES INC
Approved: Sep 6, 2019 | RLD: No | RS: No | Type: RX